FAERS Safety Report 23503785 (Version 1)
Quarter: 2024Q1

REPORT INFORMATION
  Report Type: Spontaneous
  Country: DE (occurrence: DE)
  Receive Date: 20240209
  Receipt Date: 20240209
  Transmission Date: 20240409
  Serious: Yes (Other)
  Sender: FDA-Public Use
  Company Number: DE-HALEON-DECH2024HLN006659

PATIENT

DRUGS (11)
  1. TERBINAFINE [Suspect]
     Active Substance: TERBINAFINE
     Indication: Body tinea
     Dosage: 250 MG (EVERY 1 WEEKS)
     Route: 065
     Dates: start: 20180401, end: 20200611
  2. TERBINAFINE [Suspect]
     Active Substance: TERBINAFINE
     Dosage: 250 MG, QD
     Route: 065
     Dates: start: 201704, end: 201705
  3. TERBINAFINE [Suspect]
     Active Substance: TERBINAFINE
     Dosage: 250 MG (EVERY 1 WEEKS)
     Route: 065
     Dates: start: 201504, end: 201611
  4. TERBINAFINE [Suspect]
     Active Substance: TERBINAFINE
     Dosage: UNK
     Route: 061
  5. TERBINAFINE [Suspect]
     Active Substance: TERBINAFINE
     Dosage: 250 MG (EVERY 3 DAYS)
     Route: 065
     Dates: start: 20210207
  6. TERBINAFINE [Suspect]
     Active Substance: TERBINAFINE
     Dosage: 250 MG (EVERY 2 DAYS)
     Route: 065
     Dates: start: 20180401, end: 20200611
  7. FLUCONAZOLE [Suspect]
     Active Substance: FLUCONAZOLE
     Indication: Body tinea
     Dosage: 50 MG, QD
     Route: 065
     Dates: start: 201306, end: 201504
  8. FLUCONAZOLE [Suspect]
     Active Substance: FLUCONAZOLE
     Dosage: 200 MG (EVERY 1 WEEK)
     Route: 065
     Dates: start: 201504, end: 201611
  9. VORICONAZOLE [Suspect]
     Active Substance: VORICONAZOLE
     Indication: Body tinea
     Dosage: UNK
     Route: 065
     Dates: start: 201711, end: 201712
  10. VORICONAZOLE [Suspect]
     Active Substance: VORICONAZOLE
     Dosage: 400 MG, QD
     Route: 065
     Dates: start: 201708, end: 201710
  11. ITRACONAZOLE [Suspect]
     Active Substance: ITRACONAZOLE
     Indication: Body tinea
     Dosage: 50 MG, QD
     Route: 065
     Dates: start: 201611, end: 201703

REACTIONS (4)
  - Disease progression [Unknown]
  - Hepatic enzyme increased [Unknown]
  - Adverse event [Unknown]
  - Drug resistance [Unknown]
